FAERS Safety Report 18583522 (Version 7)
Quarter: 2021Q4

REPORT INFORMATION
  Report Type: Other
  Country: NO (occurrence: None)
  Receive Date: 20201207
  Receipt Date: 20211213
  Transmission Date: 20220303
  Serious: Yes (Hospitalization, Other)
  Sender: FDA-Public Use
  Company Number: NO-ROCHE-2725534

PATIENT
  Age: 38 Year
  Sex: Female
  Weight: 52 kg

DRUGS (2)
  1. ROZLYTREK [Suspect]
     Active Substance: ENTRECTINIB
     Indication: Gene mutation
     Route: 048
  2. ROZLYTREK [Suspect]
     Active Substance: ENTRECTINIB
     Indication: Cholangiocarcinoma
     Route: 048

REACTIONS (14)
  - Urinary retention [Recovered/Resolved]
  - Troponin increased [Recovered/Resolved]
  - Cardiotoxicity [Recovered/Resolved]
  - Chest discomfort [Recovered/Resolved]
  - Depression [Recovered/Resolved]
  - Constipation [Recovered/Resolved]
  - Amnesia [Recovered/Resolved]
  - Paraesthesia [Recovered/Resolved]
  - Chest pain [Recovered/Resolved]
  - Dysgeusia [Recovered/Resolved]
  - Dysaesthesia [Recovered/Resolved]
  - Gastric disorder [Unknown]
  - Dizziness [Unknown]
  - Sensitive skin [Unknown]

NARRATIVE: CASE EVENT DATE: 20201218
